FAERS Safety Report 13462082 (Version 1)
Quarter: 2017Q2

REPORT INFORMATION
  Report Type: Spontaneous
  Country: ES (occurrence: ES)
  Receive Date: 20170420
  Receipt Date: 20170420
  Transmission Date: 20170830
  Serious: Yes (Other)
  Sender: FDA-Public Use
  Company Number: ES-JNJFOC-20170420077

PATIENT
  Age: 67 Year
  Sex: Female

DRUGS (9)
  1. ZALDIAR [Suspect]
     Active Substance: ACETAMINOPHEN\TRAMADOL HYDROCHLORIDE
     Indication: SCOLIOSIS
     Route: 048
     Dates: start: 20170216, end: 20170217
  2. PARACETAMOL [Concomitant]
     Active Substance: ACETAMINOPHEN
     Indication: CATARRH
     Route: 048
  3. NAPROXEN. [Concomitant]
     Active Substance: NAPROXEN
     Indication: BACK PAIN
     Route: 048
  4. CICLOCHEM [Concomitant]
     Active Substance: CICLOPIROX
     Route: 061
  5. CINITAPRIDE [Concomitant]
     Indication: DYSPEPSIA
     Route: 048
  6. OMEPRAZOLE. [Concomitant]
     Active Substance: OMEPRAZOLE
     Indication: DYSPEPSIA
     Route: 048
  7. LORAZEPAM. [Concomitant]
     Active Substance: LORAZEPAM
     Indication: ADJUSTMENT DISORDER WITH ANXIETY
     Route: 048
  8. RELERT [Concomitant]
     Active Substance: ELETRIPTAN HYDROBROMIDE
     Indication: HEADACHE
     Route: 048
  9. METAMIZOLE [Concomitant]
     Active Substance: METAMIZOLE
     Indication: HEADACHE
     Route: 048

REACTIONS (3)
  - Balance disorder [Recovered/Resolved]
  - Dizziness [Recovered/Resolved]
  - Vomiting [Recovered/Resolved]

NARRATIVE: CASE EVENT DATE: 20170216
